FAERS Safety Report 6346018-3 (Version None)
Quarter: 2009Q3

REPORT INFORMATION
  Report Type: 
  Country: None (occurrence: None)
  Receive Date: 20090821
  Receipt Date: 20090616
  Transmission Date: 20100115
  Serious: No
  Sender: FDA-Public Use
  Company Number: 8047870

PATIENT
  Age: 34 Year
  Sex: Female
  Weight: 66.2 kg

DRUGS (2)
  1. CIMZIA [Suspect]
     Indication: CROHN'S DISEASE
     Dosage: 400 MG SC
     Route: 058
     Dates: start: 20090602
  2. ENTOCORT EC [Concomitant]

REACTIONS (3)
  - INJECTION SITE RASH [None]
  - INJECTION SITE SWELLING [None]
  - TENDERNESS [None]
